FAERS Safety Report 4916680-8 (Version None)
Quarter: 2006Q1

REPORT INFORMATION
  Report Type: 
  Country: None (occurrence: None)
  Receive Date: 20060220
  Receipt Date: 20060208
  Transmission Date: 20060701
  Serious: Yes (Other)
  Sender: FDA-Public Use
  Company Number: 2006GB00240

PATIENT
  Age: 70 Year
  Sex: Female

DRUGS (5)
  1. LOSEC [Suspect]
     Indication: HIATUS HERNIA
     Route: 048
     Dates: start: 19960101, end: 20050401
  2. CLOPIDOGREL [Concomitant]
  3. DILTIAZEM [Concomitant]
  4. EZETROL [Concomitant]
  5. THYROXINE [Concomitant]

REACTIONS (2)
  - ANAEMIA [None]
  - GASTRIC HAEMORRHAGE [None]
